FAERS Safety Report 6418487-1 (Version None)
Quarter: 2009Q4

REPORT INFORMATION
  Report Type: 
  Country: None (occurrence: None)
  Receive Date: 20091021
  Receipt Date: 20090713
  Transmission Date: 20100525
  Serious: No
  Sender: FDA-Public Use
  Company Number: ALL1-2009-01914

PATIENT
  Age: 41 Year
  Sex: Female
  Weight: 59 kg

DRUGS (5)
  1. VYVANSE [Suspect]
     Indication: ATTENTION DEFICIT/HYPERACTIVITY DISORDER
     Dosage: 20 MG, 1X/DAY:QD, ORAL
     Route: 048
     Dates: start: 20080101, end: 20090101
  2. UNSPECIFIED VITAMIN WITH IRON() [Suspect]
     Indication: SUPPLEMENTATION THERAPY
     Dosage: 1X/DAY:QD, ORAL
     Route: 048
     Dates: end: 20090101
  3. ORAL CONTRACEPTIVE NOS (ORAL CONTRACEPTIVE NOS) [Concomitant]
  4. XANAX [Concomitant]
  5. UNSPECIFIED VITAMIN WITHOUT IRON [Concomitant]

REACTIONS (2)
  - BLOOD IRON INCREASED [None]
  - DRUG INEFFECTIVE [None]
